FAERS Safety Report 6079623-2 (Version None)
Quarter: 2009Q1

REPORT INFORMATION
  Report Type: 
  Country: None (occurrence: None)
  Receive Date: 20090217
  Receipt Date: 20090210
  Transmission Date: 20090719
  Serious: Yes (Other)
  Sender: FDA-Public Use
  Company Number: US-JNJFOC-20090202176

PATIENT
  Sex: Female
  Weight: 47.17 kg

DRUGS (8)
  1. FENTANYL TRANSDERMAL SYSTEM [Suspect]
     Indication: BACK PAIN
     Route: 062
  2. FENTANYL TRANSDERMAL SYSTEM [Suspect]
     Indication: FIBROMYALGIA
     Route: 062
  3. DURAGESIC-100 [Suspect]
     Indication: BACK PAIN
     Route: 062
  4. DURAGESIC-100 [Suspect]
     Indication: FIBROMYALGIA
     Route: 062
  5. XANAX [Suspect]
     Indication: NERVOUSNESS
     Route: 048
  6. XANAX [Suspect]
     Indication: ANXIETY
     Route: 048
  7. ATIVAN [Suspect]
     Indication: SLEEP DISORDER THERAPY
     Route: 048
  8. TYLOX [Concomitant]
     Indication: BREAKTHROUGH PAIN
     Dosage: 5/500 MG COMBINATION
     Route: 048

REACTIONS (12)
  - DEPRESSION [None]
  - DRUG INEFFECTIVE [None]
  - DRUG PRESCRIBING ERROR [None]
  - FEELING ABNORMAL [None]
  - INADEQUATE ANALGESIA [None]
  - INAPPROPRIATE SCHEDULE OF DRUG ADMINISTRATION [None]
  - INCORRECT DRUG ADMINISTRATION DURATION [None]
  - MALAISE [None]
  - MENTAL DISORDER [None]
  - PSYCHOMOTOR HYPERACTIVITY [None]
  - SUICIDAL IDEATION [None]
  - VISUAL ACUITY REDUCED [None]
